FAERS Safety Report 23728698 (Version 1)
Quarter: 2024Q2

REPORT INFORMATION
  Report Type: Spontaneous
  Country: US (occurrence: US)
  Receive Date: 20240410
  Receipt Date: 20240410
  Transmission Date: 20240715
  Serious: Yes (Hospitalization)
  Sender: FDA-Public Use
  Company Number: US-MYLANLABS-2024M1031841

PATIENT
  Age: 58 Year
  Sex: Male

DRUGS (2)
  1. METOPROLOL [Suspect]
     Active Substance: METOPROLOL
     Indication: Hypertrophic cardiomyopathy
     Dosage: 200 MILLIGRAM, QD
     Route: 065
  2. DILTIAZEM [Suspect]
     Active Substance: DILTIAZEM
     Indication: Hypertrophic cardiomyopathy
     Dosage: 30 MILLIGRAM, BID
     Route: 065

REACTIONS (3)
  - Bradycardia [Unknown]
  - Drug ineffective for unapproved indication [Unknown]
  - Off label use [Unknown]
